FAERS Safety Report 4585051-9 (Version None)
Quarter: 2005Q1

REPORT INFORMATION
  Report Type: 
  Country: None (occurrence: None)
  Receive Date: 20050217
  Receipt Date: 20041214
  Transmission Date: 20050727
  Serious: No
  Sender: FDA-Public Use
  Company Number: US-GLAXOSMITHKLINE-A0537284A

PATIENT
  Sex: Female

DRUGS (5)
  1. WELLBUTRIN XL [Suspect]
     Dosage: 150MG PER DAY
     Route: 048
  2. PROZAC [Concomitant]
  3. ANTI-HISTAMINE TAB [Concomitant]
  4. PERCOCET [Concomitant]
  5. VALIUM [Concomitant]

REACTIONS (1)
  - DRUG INEFFECTIVE [None]
